FAERS Safety Report 14816693 (Version 4)
Quarter: 2018Q3

REPORT INFORMATION
  Report Type: Report from Study
  Country: US (occurrence: US)
  Receive Date: 20180426
  Receipt Date: 20180730
  Transmission Date: 20181010
  Serious: Yes (Hospitalization, Other)
  Sender: FDA-Public Use
  Company Number: US-ACTELION-A-US2017-158501

PATIENT
  Age: 2 Month
  Sex: Female
  Weight: 7.71 kg

DRUGS (7)
  1. TRACLEER [Suspect]
     Active Substance: BOSENTAN
     Dosage: 7.4 MG, BID
     Route: 048
  2. TRACLEER [Suspect]
     Active Substance: BOSENTAN
     Dosage: 12.5 MG, BID
     Route: 048
  3. SILDENAFIL. [Concomitant]
     Active Substance: SILDENAFIL
  4. TRACLEER [Suspect]
     Active Substance: BOSENTAN
     Indication: PULMONARY ARTERIAL HYPERTENSION
     Dosage: 31.25 MG, BID
     Route: 048
  5. REMODULIN [Suspect]
     Active Substance: TREPROSTINIL
     Indication: PRODUCT USED FOR UNKNOWN INDICATION
     Dosage: UNK
     Route: 058
  6. REMODULIN [Suspect]
     Active Substance: TREPROSTINIL
     Dosage: 33 NG/KG, PER MIN
     Route: 058
  7. REMODULIN [Suspect]
     Active Substance: TREPROSTINIL
     Dosage: 47 NG/KG, UNK
     Route: 058

REACTIONS (14)
  - Nasopharyngitis [Unknown]
  - Infusion site warmth [Unknown]
  - Pulmonary hypertension [Unknown]
  - Heart rate increased [Unknown]
  - Skin discolouration [Unknown]
  - Liver function test increased [Unknown]
  - Device dislocation [Unknown]
  - Weight increased [Unknown]
  - Therapy cessation [Recovered/Resolved]
  - Infusion site erythema [Unknown]
  - Infusion site rash [Unknown]
  - Mucous stools [Unknown]
  - Infusion site irritation [Unknown]
  - Infusion site pain [Unknown]
